FAERS Safety Report 9035554 (Version 1)
Quarter: 2013Q1

REPORT INFORMATION
  Report Type: Report from Study
  Country: US (occurrence: US)
  Receive Date: 20130129
  Receipt Date: 20130129
  Transmission Date: 20140127
  Serious: No
  Sender: FDA-Public Use
  Company Number: US-ABBOTT-12P-163-0910035-00

PATIENT
  Age: 22 Year
  Sex: Female

DRUGS (7)
  1. HUMIRA 40 MG/0.8 ML PEN [Suspect]
     Indication: CROHN^S DISEASE
     Dates: start: 201012
  2. FLUTICASONE [Concomitant]
     Indication: HYPERSENSITIVITY
     Dosage: DAILY
     Route: 045
  3. AZATHIOPRINE [Concomitant]
     Indication: CROHN^S DISEASE
  4. MESALAMINE [Concomitant]
     Indication: CROHN^S DISEASE
  5. BIRTH CONTROL PILL [Concomitant]
     Indication: PRODUCT USED FOR UNKNOWN INDICATION
     Dosage: DAILY
  6. CLARITIN [Concomitant]
     Indication: HYPERSENSITIVITY
  7. OMEPRAZOLE [Concomitant]
     Indication: GASTROOESOPHAGEAL REFLUX DISEASE

REACTIONS (2)
  - Hypersensitivity [Not Recovered/Not Resolved]
  - Sinusitis [Unknown]
